FAERS Safety Report 9795602 (Version 1)
Quarter: 2014Q1

REPORT INFORMATION
  Report Type: Spontaneous
  Country: US (occurrence: US)
  Receive Date: 20140103
  Receipt Date: 20140103
  Transmission Date: 20141002
  Serious: Yes (Other)
  Sender: FDA-Public Use
  Company Number: US-BAYER-2014-000800

PATIENT
  Age: 44 Year
  Sex: Female
  Weight: 67.57 kg

DRUGS (3)
  1. YASMIN [Suspect]
  2. YAZ [Suspect]
  3. VYTORIN [Concomitant]
     Dosage: 10-20MG TABLET
     Route: 048

REACTIONS (1)
  - Deep vein thrombosis [None]
